FAERS Safety Report 23264858 (Version 1)
Quarter: 2023Q4

REPORT INFORMATION
  Report Type: Spontaneous
  Country: US (occurrence: US)
  Receive Date: 20231206
  Receipt Date: 20231206
  Transmission Date: 20240109
  Serious: Yes (Other)
  Sender: FDA-Public Use
  Company Number: US-BRISTOL-MYERS SQUIBB COMPANY-2023-171940

PATIENT
  Age: 83 Year
  Sex: Male
  Weight: 73.94 kg

DRUGS (1)
  1. OPDIVO [Suspect]
     Active Substance: NIVOLUMAB
     Indication: Metastatic renal cell carcinoma
     Dosage: ONCE A MONTH
     Dates: start: 202206, end: 202306

REACTIONS (9)
  - Rash vesicular [Unknown]
  - Oedema peripheral [Unknown]
  - Weight decreased [Unknown]
  - Asthenia [Unknown]
  - Facial paralysis [Unknown]
  - Decreased appetite [Unknown]
  - Taste disorder [Unknown]
  - Blister [Unknown]
  - Skin exfoliation [Unknown]

NARRATIVE: CASE EVENT DATE: 20231127
